FAERS Safety Report 15923383 (Version 3)
Quarter: 2019Q2

REPORT INFORMATION
  Report Type: Report from Study
  Country: FR (occurrence: FR)
  Receive Date: 20190206
  Receipt Date: 20190501
  Transmission Date: 20190711
  Serious: Yes (Other)
  Sender: FDA-Public Use
  Company Number: FR-ROCHE-2259379

PATIENT
  Age: 65 Year
  Sex: Male
  Weight: 75 kg

DRUGS (4)
  1. ATEZOLIZUMAB. [Suspect]
     Active Substance: ATEZOLIZUMAB
     Indication: LYMPHOMA
     Dosage: LAST DOSE DATE PRIOR TO SERIOUS ADVERSE EVENT : 10/JAN/2019
     Route: 065
  2. OBINUTUZUMAB. [Suspect]
     Active Substance: OBINUTUZUMAB
     Indication: LYMPHOMA
     Dosage: SAME DOSE PRIOR TO SERIOUS ADVERSE EVENT:?LAST DOSE DATE PRIOR TO SERIOUS ADVERSE EVENT : 09/JAN/201
     Route: 065
     Dates: start: 20180926
  3. TINZAPARIN SODIUM [Concomitant]
     Active Substance: TINZAPARIN SODIUM
     Indication: THROMBOSIS
     Route: 065
     Dates: start: 20180926
  4. VENETOCLAX. [Suspect]
     Active Substance: VENETOCLAX
     Indication: LYMPHOMA
     Dosage: LAST DOSE DATE PRIOR TO SERIOUS ADVERSE EVENT : 14/JAN/2019
     Route: 065
     Dates: start: 20181003

REACTIONS (1)
  - Ill-defined disorder [Recovered/Resolved]

NARRATIVE: CASE EVENT DATE: 20190114
